FAERS Safety Report 8491326-3 (Version None)
Quarter: 2012Q3

REPORT INFORMATION
  Report Type: 
  Country: None (occurrence: None)
  Receive Date: 20120706
  Receipt Date: 20120627
  Transmission Date: 20120928
  Serious: Yes (Other)
  Sender: FDA-Public Use
  Company Number: JP-ASTELLAS-2012JP006065

PATIENT
  Age: 7 Year
  Sex: Female

DRUGS (7)
  1. METHOTREXATE [Concomitant]
     Indication: PROPHYLAXIS AGAINST GRAFT VERSUS HOST DISEASE
     Dosage: 10 MG/M2, UNKNOWN/D
     Route: 065
  2. METHYLPREDNISOLON                  /00049601/ [Concomitant]
     Indication: PROPHYLAXIS AGAINST GRAFT VERSUS HOST DISEASE
     Dosage: 1 MG/KG, UNKNOWN/D
     Route: 065
  3. PROGRAF [Suspect]
     Indication: PROPHYLAXIS AGAINST GRAFT VERSUS HOST DISEASE
     Dosage: 0.02 MG/KG, UNKNOWN/D
     Route: 065
  4. METHYLPREDNISOLON                  /00049601/ [Concomitant]
     Dosage: 2 MG/KG, UNKNOWN/D
     Route: 065
  5. METHOTREXATE [Concomitant]
     Dosage: 7.5 MG/M2, UNKNOWN/D
     Route: 065
  6. METHOTREXATE [Concomitant]
     Dosage: 7.5 MG/M2, UNKNOWN/D
     Route: 065
  7. METHOTREXATE [Concomitant]
     Dosage: 10 MG/M2, UNKNOWN/D
     Route: 065

REACTIONS (3)
  - THROMBOTIC MICROANGIOPATHY [None]
  - DRUG INEFFECTIVE [None]
  - ACUTE GRAFT VERSUS HOST DISEASE [None]
